FAERS Safety Report 6998065-6 (Version None)
Quarter: 2010Q3

REPORT INFORMATION
  Report Type: 
  Country: None (occurrence: None)
  Receive Date: 20100920
  Receipt Date: 20071227
  Transmission Date: 20110219
  Serious: Yes (Other)
  Sender: FDA-Public Use
  Company Number: US-ASTRAZENECA-2006UW08172

PATIENT
  Age: 19594 Day
  Sex: Male
  Weight: 106.6 kg

DRUGS (13)
  1. SEROQUEL [Suspect]
     Indication: SCHIZOPHRENIA
     Dosage: 100-800 MG AT NIGHT
     Route: 048
     Dates: start: 20001002, end: 20061127
  2. SEROQUEL [Suspect]
     Indication: SLEEP DISORDER
     Dosage: 100-800 MG AT NIGHT
     Route: 048
     Dates: start: 20001002, end: 20061127
  3. SEROQUEL [Suspect]
     Indication: HALLUCINATION, TACTILE
     Dosage: 100-800 MG AT NIGHT
     Route: 048
     Dates: start: 20001002, end: 20061127
  4. SEROQUEL [Suspect]
     Indication: DELUSION
     Dosage: 100-800 MG AT NIGHT
     Route: 048
     Dates: start: 20001002, end: 20061127
  5. SEROQUEL [Suspect]
     Route: 048
     Dates: start: 20001030, end: 20060410
  6. SEROQUEL [Suspect]
     Route: 048
     Dates: start: 20001030, end: 20060410
  7. SEROQUEL [Suspect]
     Route: 048
     Dates: start: 20001030, end: 20060410
  8. SEROQUEL [Suspect]
     Route: 048
     Dates: start: 20001030, end: 20060410
  9. RISPERDAL [Concomitant]
     Dosage: 1 MG, 2 MG, 4 MG
     Dates: start: 20000101
  10. RISPERDAL [Concomitant]
     Dosage: 1 MG, 2 MG, 4 MG
     Dates: start: 20060101, end: 20070101
  11. PROLIXIN [Concomitant]
     Dosage: 10-20 MG
     Dates: start: 19960201
  12. MELLARIL [Concomitant]
     Dosage: 50-100 MG
     Dates: start: 19960201, end: 20001002
  13. COGENTIN [Concomitant]
     Dates: start: 19970226

REACTIONS (5)
  - DELUSION [None]
  - DIABETES MELLITUS [None]
  - NIGHTMARE [None]
  - TARDIVE DYSKINESIA [None]
  - TYPE 1 DIABETES MELLITUS [None]
